FAERS Safety Report 4875990-3 (Version None)
Quarter: 2005Q4

REPORT INFORMATION
  Report Type: 
  Country: None (occurrence: None)
  Receive Date: 20051206
  Receipt Date: 20051028
  Transmission Date: 20060501
  Serious: No
  Sender: FDA-Public Use
  Company Number: IND-AE-05-SAN-067

PATIENT
  Age: 80 Year
  Sex: Female
  Weight: 72.1219 kg

DRUGS (1)
  1. SANCTURA [Suspect]
     Indication: NOCTURIA
     Dosage: 20 MG-QD-ORAL
     Route: 048
     Dates: start: 20051010

REACTIONS (1)
  - VISION BLURRED [None]
